FAERS Safety Report 24139595 (Version 3)
Quarter: 2024Q3

REPORT INFORMATION
  Report Type: Spontaneous
  Country: US (occurrence: US)
  Receive Date: 20240726
  Receipt Date: 20240807
  Transmission Date: 20241016
  Serious: No
  Sender: ROCHE
  Company Number: US-ROCHE-10000029896

PATIENT
  Sex: Female

DRUGS (1)
  1. XOLAIR [Suspect]
     Active Substance: OMALIZUMAB
     Indication: Product used for unknown indication
     Dosage: STRENGTH: 300 MG/ 2 ML
     Route: 058
     Dates: start: 20240712

REACTIONS (3)
  - Device issue [Unknown]
  - No adverse event [Unknown]
  - Product complaint [Unknown]
